FAERS Safety Report 16181807 (Version 1)
Quarter: 2019Q2

REPORT INFORMATION
  Report Type: Spontaneous
  Country: FR (occurrence: FR)
  Receive Date: 20190410
  Receipt Date: 20190410
  Transmission Date: 20190711
  Serious: Yes (Other)
  Sender: FDA-Public Use
  Company Number: FR-SHIRE-FR201911127

PATIENT
  Age: 1 Year
  Sex: Male
  Weight: 11 kg

DRUGS (4)
  1. ADVATE [Suspect]
     Active Substance: ANTIHEMOPHILIC FACTOR, HUMAN RECOMBINANT
     Indication: FACTOR VIII DEFICIENCY
     Dosage: 250 UI 17,18 ET 19/12, 500UI 21/12 PUIS 500UI 2X/SEM
     Route: 065
     Dates: start: 20181217, end: 20190130
  2. ADVATE [Suspect]
     Active Substance: ANTIHEMOPHILIC FACTOR, HUMAN RECOMBINANT
     Dosage: 250 UI 17,18 ET 19/12, 500UI 21/12 PUIS 500UI 2X/SEM
     Route: 065
     Dates: start: 20181217, end: 20190130
  3. ADVATE [Suspect]
     Active Substance: ANTIHEMOPHILIC FACTOR, HUMAN RECOMBINANT
     Dosage: 250 UI 17,18 ET 19/12, 500UI 21/12 PUIS 500UI 2X/SEM
     Route: 065
     Dates: start: 20181217, end: 20190130
  4. ADVATE [Suspect]
     Active Substance: ANTIHEMOPHILIC FACTOR, HUMAN RECOMBINANT
     Dosage: 250 UI 17,18 ET 19/12, 500UI 21/12 PUIS 500UI 2X/SEM
     Route: 065
     Dates: start: 20181217, end: 20190130

REACTIONS (1)
  - Anti factor VIII antibody test [Not Recovered/Not Resolved]

NARRATIVE: CASE EVENT DATE: 20190130
